FAERS Safety Report 16181089 (Version 8)
Quarter: 2020Q1

REPORT INFORMATION
  Report Type: Spontaneous
  Country: US (occurrence: US)
  Receive Date: 20190410
  Receipt Date: 20200310
  Transmission Date: 20200409
  Serious: Yes (Other)
  Sender: FDA-Public Use
  Company Number: US-ALLERGAN-1915407US

PATIENT
  Sex: Female
  Weight: 72.57 kg

DRUGS (3)
  1. AQUAPHOR [Concomitant]
     Active Substance: PETROLATUM
     Indication: LACRIMATION DISORDER
  2. FLUOROMETHOLONE, 0.1% [Suspect]
     Active Substance: FLUOROMETHOLONE
     Indication: EYE INFLAMMATION
     Dosage: 1 GTT, BID
     Route: 047
     Dates: start: 201901
  3. FLUOROMETHOLONE, 0.1% [Suspect]
     Active Substance: FLUOROMETHOLONE
     Dosage: 1 GTT, BID
     Route: 047
     Dates: start: 20181211

REACTIONS (7)
  - Headache [Recovered/Resolved]
  - Eye pain [Recovered/Resolved]
  - Eye disorder [Unknown]
  - Condition aggravated [Unknown]
  - Drug ineffective [Unknown]
  - Visual impairment [Unknown]
  - Cataract [Not Recovered/Not Resolved]

NARRATIVE: CASE EVENT DATE: 201812
